FAERS Safety Report 4785560-3 (Version None)
Quarter: 2005Q4

REPORT INFORMATION
  Report Type: 
  Country: None (occurrence: None)
  Receive Date: 20051003
  Receipt Date: 20030604
  Transmission Date: 20060501
  Serious: Yes (Congenital Anomaly)
  Sender: FDA-Public Use
  Company Number: LU-GLAXOSMITHKLINE-B0301476A

PATIENT

DRUGS (1)
  1. LAMICTAL [Suspect]
     Dosage: 50MG TWICE PER DAY

REACTIONS (7)
  - CHROMOSOME ABNORMALITY [None]
  - DRUG EXPOSURE DURING PREGNANCY [None]
  - FACIAL DYSMORPHISM [None]
  - FACIAL HEMIATROPHY [None]
  - INTESTINAL ATRESIA [None]
  - NECK DEFORMITY [None]
  - TONGUE ATROPHY [None]
